FAERS Safety Report 4468046-5 (Version None)
Quarter: 2004Q4

REPORT INFORMATION
  Report Type: 
  Country: None (occurrence: None)
  Receive Date: 20041004
  Receipt Date: 20040916
  Transmission Date: 20050328
  Serious: Yes (Other)
  Sender: FDA-Public Use
  Company Number: 2004-DE-04881GD

PATIENT

DRUGS (1)
  1. CLONIDINE [Suspect]
     Indication: SPINAL ANAESTHESIA
     Dosage: 45 MCG (SEE

REACTIONS (9)
  - BRADYCARDIA [None]
  - CHILLS [None]
  - HYPOXIA [None]
  - NAUSEA [None]
  - POST PROCEDURAL COMPLICATION [None]
  - POST PROCEDURAL NAUSEA [None]
  - PROCEDURAL COMPLICATION [None]
  - PROCEDURAL HYPOTENSION [None]
  - VOMITING [None]
